FAERS Safety Report 5153306-5 (Version None)
Quarter: 2006Q4

REPORT INFORMATION
  Report Type: 
  Country: None (occurrence: None)
  Receive Date: 20061116
  Receipt Date: 20061116
  Transmission Date: 20070319
  Serious: Yes (Hospitalization)
  Sender: FDA-Public Use
  Company Number: None

PATIENT
  Sex: Female
  Weight: 106 kg

DRUGS (1)
  1. TOPOTECAN [Suspect]
     Dosage: 12.5 MG

REACTIONS (5)
  - ABDOMINAL PAIN [None]
  - DEHYDRATION [None]
  - FATIGUE [None]
  - MUSCLE SPASMS [None]
  - PULMONARY EMBOLISM [None]
